FAERS Safety Report 10050439 (Version 1)
Quarter: 2014Q2

REPORT INFORMATION
  Report Type: Spontaneous
  Country: US (occurrence: US)
  Receive Date: 20140401
  Receipt Date: 20140401
  Transmission Date: 20141212
  Serious: Yes (Other)
  Sender: FDA-Public Use
  Company Number: US-PFIZER INC-2014089137

PATIENT
  Sex: Male

DRUGS (1)
  1. SUTENT [Suspect]
     Indication: NEOPLASM MALIGNANT
     Dosage: 50 MG, CYCLIC, 2 WEEK ON 2WEEKS OFF

REACTIONS (4)
  - Osteonecrosis [Unknown]
  - Dental discomfort [Unknown]
  - Disease progression [Unknown]
  - Neoplasm malignant [Unknown]
